FAERS Safety Report 5827737-1 (Version None)
Quarter: 2008Q3

REPORT INFORMATION
  Report Type: 
  Country: None (occurrence: None)
  Receive Date: 20080730
  Receipt Date: 20080724
  Transmission Date: 20090109
  Serious: Yes (Other)
  Sender: FDA-Public Use
  Company Number: GB-ABBOTT-08P-167-0449397-00

PATIENT
  Sex: Female
  Weight: 62 kg

DRUGS (5)
  1. HUMIRA [Suspect]
     Indication: RHEUMATOID ARTHRITIS
     Route: 058
     Dates: start: 20071201, end: 20080501
  2. MELOXICAM [Concomitant]
     Indication: PAIN
     Dates: start: 20080414
  3. CARBOMER [Concomitant]
     Indication: DRY EYE
     Route: 061
     Dates: start: 20060619
  4. LISINOPRIL [Concomitant]
     Indication: HYPERTENSION
     Route: 048
     Dates: start: 20070205
  5. GLANDOSANE [Concomitant]
     Indication: DRY MOUTH
     Route: 048
     Dates: start: 20070904, end: 20071107

REACTIONS (9)
  - ANAPHYLACTIC SHOCK [None]
  - CHILLS [None]
  - DRY EYE [None]
  - EAR PAIN [None]
  - EYE IRRITATION [None]
  - MALAISE [None]
  - OROPHARYNGEAL BLISTERING [None]
  - RASH VESICULAR [None]
  - VOMITING [None]
